FAERS Safety Report 4312126-1 (Version None)
Quarter: 2004Q1

REPORT INFORMATION
  Report Type: 
  Country: None (occurrence: None)
  Receive Date: 20040303
  Receipt Date: 19980203
  Transmission Date: 20041129
  Serious: Yes (Death)
  Sender: FDA-Public Use
  Company Number: GB-JNJFOC-20031202529

PATIENT
  Age: 59 Year
  Sex: Male

DRUGS (2)
  1. INFLIXIMAB (INFLIXIMAB, RECOMBINANT) LYOPHILIZED POWDER [Suspect]
     Indication: RHEUMATOID ARTHRITIS
     Dosage: SEE IMAGE
     Route: 042
     Dates: start: 19920511
  2. INFLIXIMAB (INFLIXIMAB, RECOMBINANT) LYOPHILIZED POWDER [Suspect]
     Indication: RHEUMATOID ARTHRITIS
     Dosage: SEE IMAGE
     Route: 042
     Dates: start: 19920526

REACTIONS (11)
  - AORTIC ATHEROSCLEROSIS [None]
  - CARDIOMEGALY [None]
  - CORONARY ARTERY ATHEROSCLEROSIS [None]
  - CORONARY ARTERY DISEASE [None]
  - CORONARY ARTERY STENOSIS [None]
  - MUCOSAL INFLAMMATION [None]
  - PLEURAL ADHESION [None]
  - PULMONARY CONGESTION [None]
  - PULMONARY OEDEMA [None]
  - PURULENT DISCHARGE [None]
  - VENTRICULAR HYPERTROPHY [None]
